FAERS Safety Report 11331572 (Version 1)
Quarter: 2015Q3

REPORT INFORMATION
  Report Type: Spontaneous
  Country: US (occurrence: US)
  Receive Date: 20150803
  Receipt Date: 20150803
  Transmission Date: 20151125
  Serious: Yes (Other)
  Sender: FDA-Public Use
  Company Number: US-BAYER-2015-368349

PATIENT
  Age: 68 Year
  Sex: Female

DRUGS (16)
  1. IRON [Concomitant]
     Active Substance: IRON
     Dosage: 1 DF, QD
  2. BAYER GENUINE ASPIRIN [Suspect]
     Active Substance: ASPIRIN
     Dosage: UNK
  3. KLOR-CON [Concomitant]
     Active Substance: POTASSIUM CHLORIDE
     Dosage: 1 DF, QD
  4. TRIAMCINOLONE ACETONIDE. [Concomitant]
     Active Substance: TRIAMCINOLONE ACETONIDE
     Dosage: APPLICATION TO AFFECTED, BID
  5. GLIPIZIDE. [Concomitant]
     Active Substance: GLIPIZIDE
     Dosage: 3 DF, BID
  6. VENTOLIN HFA [Concomitant]
     Active Substance: ALBUTEROL SULFATE
     Dosage: 2 PUFFS AS NEEDED EVERY 4 HRS
  7. HYDRALAZINE HCL [Concomitant]
     Active Substance: HYDRALAZINE HYDROCHLORIDE
     Dosage: 1 DF, BID
  8. COUMADIN [Concomitant]
     Active Substance: WARFARIN SODIUM
     Dosage: 1 DF, QD
  9. LOSARTAN POTASSIUM. [Concomitant]
     Active Substance: LOSARTAN POTASSIUM
  10. AMLODIPINE BESYLATE. [Concomitant]
     Active Substance: AMLODIPINE BESYLATE
     Dosage: 1 DF, QD
  11. SOTALOL HYDROCHLORIDE. [Concomitant]
     Active Substance: SOTALOL HYDROCHLORIDE
     Dosage: 1 DF, QD
  12. LOVASTATIN. [Concomitant]
     Active Substance: LOVASTATIN
     Dosage: 2 DF, QD
  13. BUMETANIDE. [Concomitant]
     Active Substance: BUMETANIDE
     Dosage: 1 DF, BID
  14. CLONIDINE HYDROCHLORIDE. [Concomitant]
     Active Substance: CLONIDINE HYDROCHLORIDE
     Dosage: 1 DF, TID
  15. CALCIUM D3 [CALCIUM,COLECALCIFEROL] [Concomitant]
  16. MULTIVITAMINS [Concomitant]
     Active Substance: VITAMINS

REACTIONS (2)
  - Oropharyngeal blistering [Unknown]
  - Drug hypersensitivity [Unknown]
